FAERS Safety Report 13894048 (Version 1)
Quarter: 2017Q3

REPORT INFORMATION
  Report Type: Spontaneous
  Country: US (occurrence: US)
  Receive Date: 20170822
  Receipt Date: 20170822
  Transmission Date: 20171127
  Serious: No
  Sender: FDA-Public Use
  Company Number: US-LUNDBECK-DKLU2029132

PATIENT
  Sex: Female

DRUGS (3)
  1. NORTHERA [Suspect]
     Active Substance: DROXIDOPA
     Indication: PRODUCT USED FOR UNKNOWN INDICATION
     Route: 065
  2. SINEMET [Suspect]
     Active Substance: CARBIDOPA\LEVODOPA
     Indication: PRODUCT USED FOR UNKNOWN INDICATION
     Route: 065
  3. NORTHERA [Suspect]
     Active Substance: DROXIDOPA
     Route: 065

REACTIONS (10)
  - Nocturia [Unknown]
  - Sleep disorder [Unknown]
  - Somnolence [Unknown]
  - Blood pressure increased [Unknown]
  - Hallucination [Unknown]
  - Pollakiuria [Unknown]
  - Depression [Unknown]
  - Blood pressure decreased [Unknown]
  - Drug dose omission [Unknown]
  - Anxiety [Unknown]
